FAERS Safety Report 4609531-2 (Version None)
Quarter: 2005Q1

REPORT INFORMATION
  Report Type: 
  Country: None (occurrence: None)
  Receive Date: 20050316
  Receipt Date: 20050304
  Transmission Date: 20050727
  Serious: Yes (Hospitalization, Other)
  Sender: FDA-Public Use
  Company Number: ES-JNJFOC-20041205963

PATIENT
  Age: 47 Year
  Sex: Female

DRUGS (4)
  1. REMICADE [Suspect]
     Indication: PSORIASIS
     Dosage: THREE DOSES
     Route: 042
  2. METHOTREXATE [Concomitant]
  3. ACETAMINOPHEN [Concomitant]
     Indication: PROPHYLAXIS
  4. DEXCHLORPHENIRAMINE [Concomitant]
     Indication: PROPHYLAXIS

REACTIONS (2)
  - BREAST CANCER [None]
  - BREAST CANCER FEMALE [None]
